FAERS Safety Report 19940693 (Version 2)
Quarter: 2022Q4

REPORT INFORMATION
  Report Type: Spontaneous
  Country: US (occurrence: US)
  Receive Date: 20211012
  Receipt Date: 20221216
  Transmission Date: 20230113
  Serious: No
  Sender: FDA-Public Use
  Company Number: US-NOVARTISTESTPH-NVSC2021US232119

PATIENT
  Sex: Male

DRUGS (3)
  1. NEOMYCIN SULFATE\POLYMYXIN B SULFATE [Suspect]
     Active Substance: NEOMYCIN SULFATE\POLYMYXIN B SULFATE
     Indication: Product used for unknown indication
     Dosage: 3.5 MG, QD
     Route: 065
  2. LATANOPROST [Suspect]
     Active Substance: LATANOPROST
     Indication: Product used for unknown indication
     Dosage: UNK
     Route: 065
  3. TIMOLOL MALEATE [Suspect]
     Active Substance: TIMOLOL MALEATE
     Indication: Product used for unknown indication
     Dosage: UNK
     Route: 065

REACTIONS (3)
  - Eye disorder [Unknown]
  - Reading disorder [Unknown]
  - Vision blurred [Unknown]
